FAERS Safety Report 16075405 (Version 1)
Quarter: 2019Q1

REPORT INFORMATION
  Report Type: Spontaneous
  Country: US (occurrence: US)
  Receive Date: 20190315
  Receipt Date: 20190315
  Transmission Date: 20190418
  Serious: Yes (Hospitalization)
  Sender: FDA-Public Use
  Company Number: US-009507513-1903USA003526

PATIENT
  Age: 44 Year
  Sex: Female

DRUGS (2)
  1. GANIRELIX ACETATE INJECTION [Suspect]
     Active Substance: GANIRELIX ACETATE
     Indication: INFERTILITY FEMALE
     Dosage: 250 MICROGRAM, QD
     Route: 058
     Dates: start: 20190124
  2. FOLLISTIM [Suspect]
     Active Substance: FOLLITROPIN
     Indication: INFERTILITY FEMALE
     Dosage: STRENGTH REPORTED AS: AW 900, DOSE: IU/1.08 ML, FREQUENCY: 300U/DAY FOR 10-14
     Route: 058
     Dates: start: 20190118

REACTIONS (2)
  - Pruritus [Unknown]
  - Urticaria [Unknown]

NARRATIVE: CASE EVENT DATE: 20190201
